FAERS Safety Report 7905949-0 (Version None)
Quarter: 2011Q4

REPORT INFORMATION
  Report Type: 
  Country: None (occurrence: None)
  Receive Date: 20111108
  Receipt Date: 20111024
  Transmission Date: 20120403
  Serious: Yes (Hospitalization)
  Sender: FDA-Public Use
  Company Number: NATX201100014

PATIENT
  Age: 64 Year
  Sex: Female
  Weight: 90.7 kg

DRUGS (4)
  1. LOVAZA [Concomitant]
  2. VITAMIN D [Concomitant]
  3. DENAVIR [Suspect]
     Indication: ORAL HERPES
     Dosage: PRN, TOPICAL
     Route: 061
     Dates: start: 19960101
  4. SIMVASTATIN [Concomitant]

REACTIONS (5)
  - EXPIRED DRUG ADMINISTERED [None]
  - SINUSITIS [None]
  - ORAL HERPES [None]
  - CORONARY ARTERY BYPASS [None]
  - NASOPHARYNGITIS [None]
